FAERS Safety Report 4589576-1 (Version None)
Quarter: 2005Q1

REPORT INFORMATION
  Report Type: 
  Country: None (occurrence: None)
  Receive Date: 20050217
  Receipt Date: 20050214
  Transmission Date: 20050727
  Serious: Yes (Other)
  Sender: FDA-Public Use
  Company Number: 2005-02-0754

PATIENT
  Age: 59 Year
  Sex: Female

DRUGS (2)
  1. CLARATYNE (LORATADINE) TABLETS [Suspect]
     Dosage: 10 MG ORAL
     Route: 048
     Dates: start: 20010101, end: 20010101
  2. ISOPTIN [Concomitant]

REACTIONS (1)
  - TACHYCARDIA [None]
